FAERS Safety Report 7291457-X (Version None)
Quarter: 2011Q1

REPORT INFORMATION
  Report Type: 
  Country: None (occurrence: None)
  Receive Date: 20110214
  Receipt Date: 20110204
  Transmission Date: 20110831
  Serious: Yes (Other)
  Sender: FDA-Public Use
  Company Number: FR-JNJCH-2011003470

PATIENT
  Sex: Female

DRUGS (1)
  1. ALOSTIL 5% [Suspect]
     Indication: PRODUCT USED FOR UNKNOWN INDICATION
     Dosage: TEXT:UNKNOWN
     Route: 061
     Dates: start: 20100901, end: 20110101

REACTIONS (4)
  - CELL DEATH [None]
  - INCORRECT DRUG DOSAGE FORM ADMINISTERED [None]
  - ANTINUCLEAR ANTIBODY POSITIVE [None]
  - ASTHENIA [None]
